FAERS Safety Report 10021239 (Version 1)
Quarter: 2014Q1

REPORT INFORMATION
  Report Type: Spontaneous
  Country: US (occurrence: None)
  Receive Date: 20140318
  Receipt Date: 20140318
  Transmission Date: 20141002
  Serious: Yes (Other)
  Sender: FDA-Public Use
  Company Number: None

PATIENT
  Age: 49 Year
  Sex: Female
  Weight: 52.16 kg

DRUGS (1)
  1. PICATO 0.47 LEO LABORATORIES [Suspect]
     Dosage: 0.05  ONCE DAILY --

REACTIONS (4)
  - Application site pain [None]
  - Pain in extremity [None]
  - Application site vesicles [None]
  - Product quality issue [None]
